FAERS Safety Report 23503583 (Version 1)
Quarter: 2024Q1

REPORT INFORMATION
  Report Type: Spontaneous
  Country: FR (occurrence: FR)
  Receive Date: 20240208
  Receipt Date: 20240208
  Transmission Date: 20240409
  Serious: Yes (Hospitalization)
  Sender: FDA-Public Use
  Company Number: FR-AFSSAPS-PB2023001494

PATIENT
  Age: 17 Year
  Sex: Male

DRUGS (1)
  1. ISOTRETINOIN [Suspect]
     Active Substance: ISOTRETINOIN
     Indication: Acne
     Dosage: 20 MILLIGRAM, ONCE A DAY (20 MG/D)
     Route: 048
     Dates: start: 202310

REACTIONS (4)
  - Proteinuria [Recovering/Resolving]
  - Intussusception [Recovered/Resolved]
  - Arthralgia [Not Recovered/Not Resolved]
  - Vasculitic rash [Recovered/Resolved]

NARRATIVE: CASE EVENT DATE: 20231201
